FAERS Safety Report 6061278-4 (Version None)
Quarter: 2009Q1

REPORT INFORMATION
  Report Type: 
  Country: None (occurrence: None)
  Receive Date: 20090202
  Receipt Date: 20090120
  Transmission Date: 20090719
  Serious: Yes (Hospitalization)
  Sender: FDA-Public Use
  Company Number: US-GENENTECH-274150

PATIENT
  Age: 59 Year
  Sex: Male

DRUGS (6)
  1. AVASTIN [Suspect]
     Indication: COLORECTAL CANCER METASTATIC
     Dosage: 5 MG/KG, Q2W
     Route: 065
  2. AVASTIN [Suspect]
     Dosage: 7.5 MG/M2, UNK
  3. CAPECITABINE [Suspect]
     Indication: COLORECTAL CANCER METASTATIC
     Dosage: 850 MG/M2, BID
     Route: 048
  4. FLUOROURACIL [Suspect]
     Indication: COLORECTAL CANCER METASTATIC
     Dosage: UNK
  5. LEUCOVORIN CALCIUM [Suspect]
     Indication: COLORECTAL CANCER METASTATIC
  6. OXALIPLATIN [Suspect]
     Indication: COLORECTAL CANCER METASTATIC

REACTIONS (5)
  - DISEASE PROGRESSION [None]
  - NEUROPATHY PERIPHERAL [None]
  - PALMAR-PLANTAR ERYTHRODYSAESTHESIA SYNDROME [None]
  - PORTAL HYPERTENSION [None]
  - THROMBOCYTOPENIA [None]
